FAERS Safety Report 6107919-4 (Version None)
Quarter: 2009Q1

REPORT INFORMATION
  Report Type: 
  Country: None (occurrence: None)
  Receive Date: 20090309
  Receipt Date: 20090226
  Transmission Date: 20090719
  Serious: Yes (Death, Life-Threatening, Hospitalization)
  Sender: FDA-Public Use
  Company Number: US-MERCK-0902USA04487

PATIENT
  Age: 59 Year
  Sex: Female

DRUGS (11)
  1. RALTEGRAVIR POTASSIUM [Suspect]
     Indication: HIV INFECTION
     Route: 048
     Dates: start: 20080826, end: 20081125
  2. INTELENCE [Suspect]
     Indication: HIV INFECTION
     Route: 048
     Dates: start: 20080818, end: 20081125
  3. AMLODIPINE BESYLATE [Concomitant]
     Route: 065
     Dates: start: 20080603
  4. EPZICOM [Suspect]
     Indication: HIV INFECTION
     Route: 065
     Dates: start: 20080826, end: 20081125
  5. HYDROCHLOROTHIAZIDE [Concomitant]
     Indication: HYPERTENSION
     Route: 065
     Dates: start: 20080603
  6. ASPIRIN [Concomitant]
     Indication: CARDIOVASCULAR EVENT PROPHYLAXIS
     Route: 065
     Dates: start: 20080603
  7. SPIRIVA [Concomitant]
     Indication: DYSPNOEA
     Route: 065
     Dates: start: 20080829
  8. TOPROL-XL [Concomitant]
     Indication: HYPERTENSION
     Route: 065
     Dates: start: 20080603
  9. NICOTINE [Concomitant]
     Indication: EX-TOBACCO USER
     Route: 065
     Dates: start: 20080922
  10. BACTRIM [Suspect]
     Indication: PROPHYLAXIS AGAINST HIV INFECTION
     Route: 065
     Dates: start: 20080211, end: 20081118
  11. BENAZEPRIL HYDROCHLORIDE [Suspect]
     Indication: HYPERTENSION
     Route: 065
     Dates: start: 20080211, end: 20081118

REACTIONS (7)
  - DRUG RASH WITH EOSINOPHILIA AND SYSTEMIC SYMPTOMS [None]
  - ESCHERICHIA INFECTION [None]
  - FATIGUE [None]
  - HEPATIC FAILURE [None]
  - OROPHARYNGEAL SWELLING [None]
  - RENAL FAILURE ACUTE [None]
  - VERTIGO [None]
